FAERS Safety Report 5037898-2 (Version None)
Quarter: 2006Q2

REPORT INFORMATION
  Report Type: 
  Country: None (occurrence: None)
  Receive Date: 20060628
  Receipt Date: 20060619
  Transmission Date: 20061013
  Serious: Yes (Life-Threatening, Hospitalization, Other)
  Sender: FDA-Public Use
  Company Number: DE-ABBOTT-06P-062-0336433-00

PATIENT
  Sex: Female

DRUGS (3)
  1. HUMIRA [Suspect]
     Indication: RHEUMATOID ARTHRITIS
     Route: 058
     Dates: start: 20060516, end: 20060615
  2. METHOTREXATE SODIUM [Concomitant]
     Indication: RHEUMATOID ARTHRITIS
     Route: 048
     Dates: start: 20050101
  3. SULFASALAZINE [Concomitant]
     Indication: DRUG USE FOR UNKNOWN INDICATION
     Dates: end: 20060516

REACTIONS (9)
  - ACUTE ABDOMEN [None]
  - ACUTE RESPIRATORY DISTRESS SYNDROME [None]
  - ANTITHROMBIN III DECREASED [None]
  - BLOOD CREATININE INCREASED [None]
  - C-REACTIVE PROTEIN INCREASED [None]
  - GALLBLADDER DISORDER [None]
  - HAEMOGLOBIN DECREASED [None]
  - SEPSIS [None]
  - URINARY TRACT INFECTION [None]
